FAERS Safety Report 22239773 (Version 2)
Quarter: 2023Q4

REPORT INFORMATION
  Report Type: Spontaneous
  Country: US (occurrence: US)
  Receive Date: 20230421
  Receipt Date: 20231118
  Transmission Date: 20240109
  Serious: No
  Sender: FDA-Public Use
  Company Number: US-SA-SAC20230421000194

PATIENT
  Age: 20 Year
  Sex: Female

DRUGS (2)
  1. DUPIXENT [Suspect]
     Active Substance: DUPILUMAB
     Indication: Dermatitis atopic
     Dosage: 300 MG, QOW
     Route: 058
     Dates: start: 20221004
  2. NECON [MESTRANOL;NORETHISTERONE] [Concomitant]

REACTIONS (3)
  - Eye irritation [Unknown]
  - Product dose omission in error [Unknown]
  - Drug ineffective [Unknown]
